FAERS Safety Report 4404571-0 (Version None)
Quarter: 2004Q3

REPORT INFORMATION
  Report Type: 
  Country: None (occurrence: None)
  Receive Date: 20040721
  Receipt Date: 20040721
  Transmission Date: 20050211
  Serious: Yes (Life-Threatening)
  Sender: FDA-Public Use
  Company Number: None

PATIENT
  Age: 47 Year
  Sex: Male
  Weight: 97.5234 kg

DRUGS (7)
  1. CLONAZEPAM [Suspect]
     Indication: ANXIETY
     Dosage: 1 MG TABLET BID/ 1 MG MORNING + 1 MG NIGHT
  2. HALOPERIDOL DECANOATE [Concomitant]
  3. ... [Concomitant]
  4. PROPRANOLOL [Concomitant]
  5. BENZTROPINE MESYLATE [Concomitant]
  6. PROTONIX [Concomitant]
  7. DICLOFENAC [Concomitant]

REACTIONS (12)
  - ALOPECIA [None]
  - AMNESIA [None]
  - ASTHENIA [None]
  - CLUMSINESS [None]
  - COORDINATION ABNORMAL [None]
  - DRY MOUTH [None]
  - FALL [None]
  - FEELING ABNORMAL [None]
  - GAIT DISTURBANCE [None]
  - PAIN [None]
  - ROAD TRAFFIC ACCIDENT [None]
  - VISION BLURRED [None]
